FAERS Safety Report 5400848-0 (Version None)
Quarter: 2007Q3

REPORT INFORMATION
  Report Type: 
  Country: None (occurrence: None)
  Receive Date: 20070730
  Receipt Date: 20070412
  Transmission Date: 20080115
  Serious: No
  Sender: FDA-Public Use
  Company Number: A0646995A

PATIENT
  Sex: Male

DRUGS (4)
  1. IMITREX [Suspect]
     Indication: CLUSTER HEADACHE
     Dosage: 100MG THREE TIMES PER DAY
     Route: 048
  2. PROPRANOLOL [Concomitant]
  3. ZOLOFT [Concomitant]
  4. OTHER MEDICATIONS [Concomitant]

REACTIONS (1)
  - INTENTIONAL DRUG MISUSE [None]
